FAERS Safety Report 9744550 (Version 1)
Quarter: 2013Q4

REPORT INFORMATION
  Report Type: Spontaneous
  Country: US (occurrence: US)
  Receive Date: 20131210
  Receipt Date: 20131210
  Transmission Date: 20140711
  Serious: Yes (Death, Other)
  Sender: FDA-Public Use
  Company Number: US-CELGENEUS-163-22393-13120655

PATIENT
  Age: 51 Year
  Sex: Male

DRUGS (21)
  1. ISTODAX [Suspect]
     Indication: ANAPLASTIC LARGE CELL LYMPHOMA T- AND NULL-CELL TYPES
     Route: 065
  2. ISTODAX [Suspect]
     Indication: MYCOSIS FUNGOIDES
  3. BEXAROTENE [Concomitant]
     Indication: ANAPLASTIC LARGE CELL LYMPHOMA T- AND NULL-CELL TYPES
     Route: 065
  4. BEXAROTENE [Concomitant]
     Indication: MYCOSIS FUNGOIDES
  5. PRALATREXATE [Concomitant]
     Indication: ANAPLASTIC LARGE CELL LYMPHOMA T- AND NULL-CELL TYPES
     Route: 065
  6. PRALATREXATE [Concomitant]
     Indication: MYCOSIS FUNGOIDES
  7. BRENTUXIMAB VEDOTIN [Concomitant]
     Indication: ANAPLASTIC LARGE CELL LYMPHOMA T- AND NULL-CELL TYPES
     Route: 065
  8. BRENTUXIMAB VEDOTIN [Concomitant]
     Indication: MYCOSIS FUNGOIDES
  9. DOXORUBICIN [Concomitant]
     Indication: ANAPLASTIC LARGE CELL LYMPHOMA T- AND NULL-CELL TYPES
     Route: 065
  10. DOXORUBICIN [Concomitant]
     Indication: MYCOSIS FUNGOIDES
  11. CYCLOPHOSPHAMIDE [Concomitant]
     Indication: ANAPLASTIC LARGE CELL LYMPHOMA T- AND NULL-CELL TYPES
     Route: 065
  12. CYCLOPHOSPHAMIDE [Concomitant]
     Indication: MYCOSIS FUNGOIDES
  13. HYDROXYDAUNORUBICIN [Concomitant]
     Indication: ANAPLASTIC LARGE CELL LYMPHOMA T- AND NULL-CELL TYPES
     Route: 065
  14. HYDROXYDAUNORUBICIN [Concomitant]
     Indication: MYCOSIS FUNGOIDES
  15. ONCOVIN [Concomitant]
     Indication: ANAPLASTIC LARGE CELL LYMPHOMA T- AND NULL-CELL TYPES
     Route: 065
  16. ONCOVIN [Concomitant]
     Indication: MYCOSIS FUNGOIDES
  17. PREDNISONE [Concomitant]
     Indication: ANAPLASTIC LARGE CELL LYMPHOMA T- AND NULL-CELL TYPES
     Route: 065
  18. PREDNISONE [Concomitant]
     Indication: MYCOSIS FUNGOIDES
  19. FLUDARABINE [Concomitant]
     Indication: ANAPLASTIC LARGE CELL LYMPHOMA T- AND NULL-CELL TYPES
     Route: 065
  20. FLUDARABINE [Concomitant]
     Indication: MYCOSIS FUNGOIDES
  21. MELPHALAN [Concomitant]
     Indication: ANAPLASTIC LARGE CELL LYMPHOMA T- AND NULL-CELL TYPES
     Route: 065

REACTIONS (2)
  - Sepsis [Fatal]
  - Mycosis fungoides [Unknown]
